FAERS Safety Report 20048089 (Version 1)
Quarter: 2021Q4

REPORT INFORMATION
  Report Type: Report from Study
  Country: IL (occurrence: IL)
  Receive Date: 20211109
  Receipt Date: 20211109
  Transmission Date: 20220303
  Serious: Yes (Hospitalization)
  Sender: FDA-Public Use
  Company Number: IL-ELI_LILLY_AND_COMPANY-IL202108013220

PATIENT
  Age: 82 Year
  Sex: Female

DRUGS (4)
  1. FORTEO [Suspect]
     Active Substance: TERIPARATIDE
     Indication: Osteoporosis
     Dosage: 20 UG, DAILY
     Route: 065
     Dates: start: 20210819
  2. FORTEO [Suspect]
     Active Substance: TERIPARATIDE
     Dosage: 20 UG, DAILY
     Route: 065
  3. TERIPARATIDE [Suspect]
     Active Substance: TERIPARATIDE
     Indication: Osteoporosis
     Dosage: UNK, UNKNOWN
     Route: 065
     Dates: start: 20211013
  4. LEVOTHYROXINE [Concomitant]
     Active Substance: LEVOTHYROXINE
     Indication: Product used for unknown indication

REACTIONS (7)
  - Pericardial effusion [Not Recovered/Not Resolved]
  - Blood glucose increased [Recovering/Resolving]
  - Heart rate decreased [Recovering/Resolving]
  - Malaise [Recovering/Resolving]
  - Blood pressure decreased [Recovering/Resolving]
  - Blood sodium decreased [Unknown]
  - Wrong product administered [Unknown]

NARRATIVE: CASE EVENT DATE: 20210801
